FAERS Safety Report 4712883-6 (Version None)
Quarter: 2005Q3

REPORT INFORMATION
  Report Type: 
  Country: None (occurrence: None)
  Receive Date: 20050712
  Receipt Date: 20050712
  Transmission Date: 20060218
  Serious: Yes (Hospitalization)
  Sender: FDA-Public Use
  Company Number: None

PATIENT
  Age: 41 Year
  Sex: Male

DRUGS (14)
  1. PROGRAF [Suspect]
     Indication: RENAL TRANSPLANT
     Dosage: 1MG   WEEKLY   ORAL
     Route: 048
     Dates: start: 20040310, end: 20050422
  2. KALETRA [Suspect]
     Indication: HIV INFECTION
     Dosage: 4 CAPSULES  BID   ORAL
     Route: 048
     Dates: start: 20040101, end: 20050522
  3. MYCOPHENOLATE [Concomitant]
  4. PREDNISONE [Concomitant]
  5. PROTONIX [Concomitant]
  6. NEURONTIN [Concomitant]
  7. PAXIL [Concomitant]
  8. EPIVIR [Concomitant]
  9. METOPROLOL [Concomitant]
  10. MINOXIDIL [Concomitant]
  11. FUZEON [Concomitant]
  12. LORAZEPAM [Concomitant]
  13. TRAMADOL HCL [Concomitant]
  14. HECTOROL [Concomitant]

REACTIONS (3)
  - DRUG INTERACTION [None]
  - DRUG TOXICITY [None]
  - RENAL FAILURE [None]
